FAERS Safety Report 13021470 (Version 2)
Quarter: 2017Q1

REPORT INFORMATION
  Report Type: Spontaneous
  Country: ES (occurrence: ES)
  Receive Date: 20161213
  Receipt Date: 20170112
  Transmission Date: 20170428
  Serious: Yes (Other)
  Sender: FDA-Public Use
  Company Number: ES-SUN PHARMACEUTICAL INDUSTRIES LTD-2016RR-128354

PATIENT
  Age: 66 Year
  Sex: Female

DRUGS (10)
  1. 5-FLUOROURACIL [Suspect]
     Active Substance: FLUOROURACIL
     Indication: COLORECTAL CANCER METASTATIC
     Dosage: 400 MG/M2, ON DAY 1, 14 DAY CYCLE, 12 CYCLES
     Route: 040
     Dates: end: 201109
  2. BEVACIZUMAB [Suspect]
     Active Substance: BEVACIZUMAB
     Indication: COLORECTAL CANCER METASTATIC
     Dosage: 5 MG/KG, ON DAY 1, 14 DAY CYCLE, 12 CYCLES
     Route: 065
     Dates: end: 201109
  3. CALCIUM FOLINAT [Suspect]
     Active Substance: LEUCOVORIN CALCIUM
     Dosage: 200 MG/M2, ON DAY 1, 14 DAY CYCLE, 14 CYCLES
     Route: 065
     Dates: start: 201307
  4. CALCIUM FOLINAT [Suspect]
     Active Substance: LEUCOVORIN CALCIUM
     Indication: COLORECTAL CANCER METASTATIC
     Dosage: 200 MG/M2, ON DAY 1, 14 DAY CYCLE, 12 CYCLES
     Route: 065
     Dates: end: 201109
  5. 5-FLUOROURACIL [Suspect]
     Active Substance: FLUOROURACIL
     Dosage: 400 MG/M2, ON DAY 1, 14 DAY CYCLE, 14 CYCLES
     Route: 040
     Dates: start: 201307
  6. 5-FLUOROURACIL [Suspect]
     Active Substance: FLUOROURACIL
     Dosage: 2400 MG/M2, ON DAY 1, 14 DAY CYCLE, 12 CYCLES
     Route: 042
     Dates: end: 201109
  7. IRINOTECAN [Suspect]
     Active Substance: IRINOTECAN
     Indication: COLORECTAL CANCER METASTATIC
     Dosage: 180 MG/M2, ON DAY 1, 14 DAY CYCLE, 14 CYCLES
     Route: 065
  8. AFLIBERCEPT [Suspect]
     Active Substance: AFLIBERCEPT
     Indication: COLORECTAL CANCER METASTATIC
     Dosage: 4 MG/KG, ON DAY 1, 14 DAY CYCLE, 11 CYCLES
     Route: 065
     Dates: start: 201307
  9. OXALIPLATIN. [Suspect]
     Active Substance: OXALIPLATIN
     Indication: COLORECTAL CANCER METASTATIC
     Dosage: 85 MG/M2,  ON DAY 1, 14 DAY CYCLE, 12 CYCLES
     Route: 065
     Dates: end: 201109
  10. 5-FLUOROURACIL [Suspect]
     Active Substance: FLUOROURACIL
     Dosage: 2400 MG/M2, ON DAY 1, 14 DAY CYCLE, 14 CYCLES
     Route: 042
     Dates: start: 201307

REACTIONS (11)
  - Disease progression [Unknown]
  - Epistaxis [Unknown]
  - Diarrhoea [Unknown]
  - Conjunctival disorder [Unknown]
  - Decreased appetite [Unknown]
  - Therapeutic response decreased [Unknown]
  - Proteinuria [Unknown]
  - Fatigue [Unknown]
  - Alopecia [Unknown]
  - Neutropenia [Unknown]
  - Dysphonia [Unknown]

NARRATIVE: CASE EVENT DATE: 201510
